FAERS Safety Report 5109705-0 (Version None)
Quarter: 2006Q3

REPORT INFORMATION
  Report Type: 
  Country: None (occurrence: None)
  Receive Date: 20060918
  Receipt Date: 20060912
  Transmission Date: 20061208
  Serious: Yes (Hospitalization)
  Sender: FDA-Public Use
  Company Number: EM2006-0502

PATIENT
  Age: 60 Year
  Sex: Female
  Weight: 83.6 kg

DRUGS (2)
  1. PROLEUKIN [Suspect]
     Indication: RENAL CELL CARCINOMA STAGE UNSPECIFIED
     Dosage: MU
     Dates: start: 20060327, end: 20060421
  2. IFN ALPHA(IBUPROFEN) [Suspect]
     Indication: RENAL CELL CARCINOMA STAGE UNSPECIFIED
     Dosage: MU
     Dates: start: 20060327, end: 20060421

REACTIONS (1)
  - DEHYDRATION [None]
